FAERS Safety Report 24603302 (Version 1)
Quarter: 2024Q4

REPORT INFORMATION
  Report Type: Spontaneous
  Country: US (occurrence: None)
  Receive Date: 20241108
  Receipt Date: 20241108
  Transmission Date: 20250115
  Serious: No
  Sender: Public
  Company Number: None

PATIENT
  Age: 79 Year
  Sex: Male
  Weight: 72.9 kg

DRUGS (3)
  1. MINOXIDIL TOPICAL [Suspect]
     Active Substance: MINOXIDIL
     Indication: Alopecia
     Dosage: 2 SPRAY(S) TWICE  DAY TOPICAL
     Route: 061
  2. METFORMIN [Concomitant]
  3. INSULIN [Concomitant]

REACTIONS (3)
  - Pruritus [None]
  - Skin disorder [None]
  - Rash [None]

NARRATIVE: CASE EVENT DATE: 20241105
